FAERS Safety Report 21954815 (Version 1)
Quarter: 2023Q1

REPORT INFORMATION
  Report Type: Spontaneous
  Country: US (occurrence: US)
  Receive Date: 20230205
  Receipt Date: 20230205
  Transmission Date: 20230418
  Serious: No
  Sender: FDA-Public Use
  Company Number: US-009507513-2302USA000259

PATIENT
  Age: 81 Year
  Sex: Male

DRUGS (1)
  1. MOLNUPIRAVIR [Suspect]
     Active Substance: MOLNUPIRAVIR
     Indication: COVID-19 treatment
     Dosage: 4 DOSAGE FORM, QD
     Route: 048
     Dates: start: 20230128, end: 20230128

REACTIONS (4)
  - Movement disorder [Recovered/Resolved]
  - Gait inability [Recovered/Resolved]
  - Speech disorder [Recovered/Resolved]
  - Motor dysfunction [Recovered/Resolved]

NARRATIVE: CASE EVENT DATE: 20230128
